FAERS Safety Report 15746913 (Version 5)
Quarter: 2021Q2

REPORT INFORMATION
  Report Type: Spontaneous
  Country: JP (occurrence: JP)
  Receive Date: 20181220
  Receipt Date: 20210405
  Transmission Date: 20210716
  Serious: Yes (Death, Hospitalization)
  Sender: FDA-Public Use
  Company Number: PHJP2018JP020006

PATIENT
  Age: 37 Year
  Sex: Male
  Weight: 66.7 kg

DRUGS (1)
  1. GILENYA [Suspect]
     Active Substance: FINGOLIMOD HYDROCHLORIDE
     Indication: MULTIPLE SCLEROSIS
     Dosage: 0.5 MG, QD
     Route: 048
     Dates: start: 20160328, end: 20180112

REACTIONS (5)
  - Altered state of consciousness [Fatal]
  - Diffuse large B-cell lymphoma [Fatal]
  - Quadriplegia [Fatal]
  - Brain herniation [Fatal]
  - Depressed level of consciousness [Fatal]

NARRATIVE: CASE EVENT DATE: 20180801
